FAERS Safety Report 7419475-9 (Version None)
Quarter: 2011Q2

REPORT INFORMATION
  Report Type: 
  Country: None (occurrence: None)
  Receive Date: 20110413
  Receipt Date: 20110413
  Transmission Date: 20111010
  Serious: Yes (Other)
  Sender: FDA-Public Use
  Company Number: None

PATIENT
  Age: 2 Year
  Sex: Female
  Weight: 12.2471 kg

DRUGS (1)
  1. AMOXICILLIN [Suspect]
     Indication: EAR INFECTION
     Dosage: 2.5MLS 125MG 3X DAILY 10 DAYS ORAL
     Route: 048
     Dates: start: 20110317, end: 20110319

REACTIONS (6)
  - SLEEP TERROR [None]
  - SCREAMING [None]
  - INSOMNIA [None]
  - ABNORMAL BEHAVIOUR [None]
  - DECREASED APPETITE [None]
  - CRYING [None]
